FAERS Safety Report 6132432-8 (Version None)
Quarter: 2009Q1

REPORT INFORMATION
  Report Type: 
  Country: None (occurrence: None)
  Receive Date: 20090325
  Receipt Date: 20090325
  Transmission Date: 20090719
  Serious: Yes (Hospitalization)
  Sender: FDA-Public Use
  Company Number: PHHO2002RU05727

PATIENT
  Sex: Female
  Weight: 100 kg

DRUGS (3)
  1. CGS 20267 T30748+ [Suspect]
     Indication: BREAST CANCER
     Dosage: 2.5 MG, QD
     Route: 048
     Dates: start: 19990701, end: 20020625
  2. CGS 20267 T30748+ [Suspect]
     Route: 048
     Dates: start: 20020701
  3. ENAP [Concomitant]
     Indication: HYPERTENSION

REACTIONS (4)
  - ANGIOSCLEROSIS [None]
  - CATARACT [None]
  - EYE OPERATION [None]
  - INTRAOCULAR LENS IMPLANT [None]
